FAERS Safety Report 9656228 (Version 2)
Quarter: 2014Q1

REPORT INFORMATION
  Report Type: Report from Study
  Country: GB (occurrence: GB)
  Receive Date: 20131030
  Receipt Date: 20140131
  Transmission Date: 20141002
  Serious: Yes (Life-Threatening, Hospitalization, Other)
  Sender: FDA-Public Use
  Company Number: US-ASTRAZENECA-2013SE79144

PATIENT
  Age: 65 Year
  Sex: Female

DRUGS (12)
  1. CANDESARTAN [Suspect]
     Indication: HYPERTENSION
     Route: 048
     Dates: start: 20120804
  2. METFORMIN HYDROCHLORIDE [Suspect]
     Indication: PRODUCT USED FOR UNKNOWN INDICATION
     Route: 048
     Dates: start: 20120804
  3. CELECOXIB [Suspect]
     Indication: ANALGESIC THERAPY
     Route: 048
     Dates: start: 20120804
  4. FUROSEMIDE [Suspect]
     Indication: HYPERTENSION
     Route: 048
     Dates: start: 20120804
  5. CLONAZEPAM [Concomitant]
  6. GABAPENTIN [Concomitant]
  7. MIRTAZAPINE [Concomitant]
  8. RANITIDINE [Concomitant]
  9. VENLAFAXINE [Concomitant]
  10. VITAMINS NOS [Concomitant]
  11. SITAGLIPTIN [Concomitant]
  12. STATIN [Concomitant]

REACTIONS (6)
  - Condition aggravated [Recovered/Resolved]
  - Dehydration [Recovered/Resolved]
  - Diarrhoea [Unknown]
  - Malaise [Unknown]
  - Vomiting [Unknown]
  - Renal failure acute [Recovered/Resolved]
